FAERS Safety Report 5766295-7 (Version None)
Quarter: 2008Q2

REPORT INFORMATION
  Report Type: 
  Country: None (occurrence: None)
  Receive Date: 20080611
  Receipt Date: 20080604
  Transmission Date: 20081010
  Serious: Yes (Other)
  Sender: FDA-Public Use
  Company Number: US-GILEAD-2008-0016502

PATIENT
  Sex: Female

DRUGS (10)
  1. LETAIRIS [Suspect]
     Indication: PULMONARY ARTERIAL HYPERTENSION
     Route: 048
     Dates: start: 20080328, end: 20080428
  2. WARFARIN SODIUM [Concomitant]
  3. ATENOLOL [Concomitant]
  4. LEVOTHROID [Concomitant]
  5. PREDNISONE TAB [Concomitant]
  6. FLECAINIDE ACETATE [Concomitant]
  7. LORAZEPAM [Concomitant]
  8. GABADONE [Concomitant]
  9. ACETAMINOPHEN AND HYDROCODONE BITARTRATE [Concomitant]
  10. VITAMINS AND MINERALS [Concomitant]

REACTIONS (7)
  - ANXIETY [None]
  - DYSPNOEA [None]
  - FATIGUE [None]
  - HAEMOGLOBIN ABNORMAL [None]
  - HYPERTENSION [None]
  - OEDEMA [None]
  - WEIGHT INCREASED [None]
